FAERS Safety Report 22541691 (Version 2)
Quarter: 2023Q2

REPORT INFORMATION
  Report Type: Spontaneous
  Country: BR (occurrence: None)
  Receive Date: 20230609
  Receipt Date: 20230615
  Transmission Date: 20230722
  Serious: Yes (Hospitalization, Other)
  Sender: FDA-Public Use
  Company Number: 2023A131500

PATIENT
  Age: 49 Year
  Sex: Male
  Weight: 76 kg

DRUGS (3)
  1. TAGRISSO [Suspect]
     Active Substance: OSIMERTINIB
     Indication: Lung neoplasm malignant
     Dosage: A TABLET
     Route: 048
     Dates: start: 20211101, end: 202305
  2. XARELTO [Concomitant]
     Active Substance: RIVAROXABAN
     Indication: Thrombosis
     Dosage: A TABLET
  3. DULOXETINE [Concomitant]
     Active Substance: DULOXETINE
     Indication: Anxiety
     Dosage: A TABLET

REACTIONS (5)
  - Thyroid cancer [Unknown]
  - Spinal column injury [Unknown]
  - Back pain [Recovering/Resolving]
  - Thrombosis [Unknown]
  - Anxiety [Unknown]

NARRATIVE: CASE EVENT DATE: 20230101
